FAERS Safety Report 4907371-8 (Version None)
Quarter: 2006Q1

REPORT INFORMATION
  Report Type: 
  Country: None (occurrence: None)
  Receive Date: 20060208
  Receipt Date: 20060208
  Transmission Date: 20060701
  Serious: Yes (Life-Threatening, Hospitalization, Disabling, Other)
  Sender: FDA-Public Use
  Company Number: None

PATIENT
  Age: 23 Year
  Sex: Female
  Weight: 69.8539 kg

DRUGS (2)
  1. ORTHO EVRA [Suspect]
     Indication: CONTRACEPTION
     Dosage: 1 PATCH   1 PATCH/WK   TRANSDERMAL
     Route: 062
     Dates: start: 20030301, end: 20031105
  2. ORTHO EVRA [Suspect]
     Indication: MENSTRUATION IRREGULAR
     Dosage: 1 PATCH   1 PATCH/WK   TRANSDERMAL
     Route: 062
     Dates: start: 20030301, end: 20031105

REACTIONS (1)
  - DEEP VEIN THROMBOSIS [None]
